FAERS Safety Report 7964143-8 (Version None)
Quarter: 2011Q4

REPORT INFORMATION
  Report Type: 
  Country: None (occurrence: None)
  Receive Date: 20111205
  Receipt Date: 20111116
  Transmission Date: 20120403
  Serious: Yes (Other)
  Sender: FDA-Public Use
  Company Number: 2011AP002738

PATIENT
  Age: 35 Year
  Sex: Male

DRUGS (9)
  1. PIROXICAM [Suspect]
     Indication: PRODUCT USED FOR UNKNOWN INDICATION
     Dosage: 10 MG
     Route: 048
  2. LORATADINE [Suspect]
     Indication: PRODUCT USED FOR UNKNOWN INDICATION
     Dosage: 5 MG; 10 MG;CAP;PO ;QH
     Route: 048
  3. ACETAMINOPHEN [Concomitant]
  4. FEXOFENADINE HCL [Concomitant]
  5. ETORICOXIB (ETORICOXIB) [Concomitant]
  6. IBUPROFEN [Suspect]
     Indication: PRODUCT USED FOR UNKNOWN INDICATION
  7. NAPROXEN [Suspect]
     Indication: PRODUCT USED FOR UNKNOWN INDICATION
  8. CETIRIZINE [Suspect]
     Indication: URTICARIA
     Route: 048
  9. CETIRIZINE [Suspect]
     Indication: ANGIOEDEMA
     Route: 048

REACTIONS (3)
  - ANGIOEDEMA [None]
  - URTICARIA [None]
  - DRUG HYPERSENSITIVITY [None]
